FAERS Safety Report 4448611-1 (Version None)
Quarter: 2004Q3

REPORT INFORMATION
  Report Type: 
  Country: None (occurrence: None)
  Receive Date: 20040730
  Receipt Date: 20040209
  Transmission Date: 20050211
  Serious: Yes (Disabling)
  Sender: FDA-Public Use
  Company Number: 2004-02-0765

PATIENT
  Sex: Male

DRUGS (1)
  1. INTERFERON INJECTABLE [Suspect]
     Dates: start: 19990101, end: 20040126

REACTIONS (1)
  - FATIGUE [None]
